FAERS Safety Report 5642898-5 (Version None)
Quarter: 2008Q1

REPORT INFORMATION
  Report Type: 
  Country: None (occurrence: None)
  Receive Date: 20080228
  Receipt Date: 20080220
  Transmission Date: 20080703
  Serious: Yes (Hospitalization, Other)
  Sender: FDA-Public Use
  Company Number: BR-ASTRAZENECA-2007UW25394

PATIENT
  Age: 65 Year
  Sex: Female

DRUGS (2)
  1. ARIMIDEX [Suspect]
     Indication: BREAST CANCER
     Route: 048
     Dates: start: 20050701
  2. OMEPRAZOLE [Concomitant]
     Indication: GASTRITIS
     Route: 048
     Dates: start: 20040101

REACTIONS (9)
  - DEPRESSION [None]
  - DIZZINESS [None]
  - FEAR [None]
  - HEAD DISCOMFORT [None]
  - MUSCULAR WEAKNESS [None]
  - RESTLESSNESS [None]
  - TOOTHACHE [None]
  - TREMOR [None]
  - WEIGHT DECREASED [None]
